FAERS Safety Report 16422166 (Version 1)
Quarter: 2019Q2

REPORT INFORMATION
  Report Type: Spontaneous
  Country: US (occurrence: US)
  Receive Date: 20190612
  Receipt Date: 20190612
  Transmission Date: 20190711
  Serious: No
  Sender: FDA-Public Use
  Company Number: US-PERRIGO-18US007372

PATIENT
  Age: 68 Year
  Sex: Female
  Weight: 62.13 kg

DRUGS (1)
  1. MINOXIDIL. [Suspect]
     Active Substance: MINOXIDIL
     Indication: ALOPECIA
     Dosage: 1 CAPFUL, QD
     Route: 061
     Dates: start: 2015, end: 20180716

REACTIONS (7)
  - Application site discharge [Not Recovered/Not Resolved]
  - Application site erythema [Recovering/Resolving]
  - Incorrect dose administered [Recovered/Resolved]
  - Hypertrichosis [Not Recovered/Not Resolved]
  - Application site irritation [Recovering/Resolving]
  - Product administered at inappropriate site [Recovered/Resolved]
  - Dermatitis contact [Not Recovered/Not Resolved]

NARRATIVE: CASE EVENT DATE: 2015
